FAERS Safety Report 16760075 (Version 2)
Quarter: 2019Q3

REPORT INFORMATION
  Report Type: Spontaneous
  Country: US (occurrence: US)
  Receive Date: 20190830
  Receipt Date: 20190913
  Transmission Date: 20191005
  Serious: No
  Sender: FDA-Public Use
  Company Number: US-AMGEN-USASP2019136415

PATIENT
  Age: 70 Year
  Sex: Female
  Weight: 58.5 kg

DRUGS (4)
  1. PARSABIV [Suspect]
     Active Substance: ETELCALCETIDE HYDROCHLORIDE
     Indication: HYPERPARATHYROIDISM SECONDARY
     Dosage: 2.5 MILLIGRAM
     Route: 042
     Dates: start: 201906
  2. SEVELAMER [Concomitant]
     Active Substance: SEVELAMER
     Indication: PHOSPHORUS METABOLISM DISORDER
     Dosage: 800 MILLIGRAM (3 PILLS/MEAL)
     Dates: start: 20190104
  3. SENSIPAR [Suspect]
     Active Substance: CINACALCET HYDROCHLORIDE
     Dosage: 90 MILLIGRAM
     Route: 048
     Dates: start: 20190521, end: 20190614
  4. SENSIPAR [Suspect]
     Active Substance: CINACALCET HYDROCHLORIDE
     Indication: PRODUCT USED FOR UNKNOWN INDICATION
     Dosage: 60 MILLIGRAM
     Route: 048
     Dates: start: 20190321, end: 20190521

REACTIONS (5)
  - Gastrointestinal disorder [Unknown]
  - Feeling abnormal [Not Recovered/Not Resolved]
  - Underdose [Unknown]
  - Treatment noncompliance [Unknown]
  - Hypophagia [Unknown]

NARRATIVE: CASE EVENT DATE: 2019
